FAERS Safety Report 14261465 (Version 1)
Quarter: 2017Q4

REPORT INFORMATION
  Report Type: Report from Study
  Country: US (occurrence: US)
  Receive Date: 20171208
  Receipt Date: 20171208
  Transmission Date: 20180321
  Serious: Yes (Other)
  Sender: FDA-Public Use
  Company Number: US-ROCHE-1970774

PATIENT
  Age: 65 Year
  Sex: Female
  Weight: 86.71 kg

DRUGS (6)
  1. ESBRIET [Suspect]
     Active Substance: PIRFENIDONE
     Dosage: ONGOING: NO, 3 CAPSULES 3 TIMES A DAY
     Route: 048
     Dates: start: 20170526, end: 20170627
  2. ESBRIET [Suspect]
     Active Substance: PIRFENIDONE
     Dosage: ONGOING YES, 2 CAPSULES 3 TIMES A DAY
     Route: 048
     Dates: start: 20170726
  3. ESBRIET [Suspect]
     Active Substance: PIRFENIDONE
     Route: 048
  4. ESBRIET [Suspect]
     Active Substance: PIRFENIDONE
     Dosage: ONGOING: NO, 2 CAPSULES 3 TIMES A DAY
     Route: 048
     Dates: start: 20170630, end: 20170630
  5. ESBRIET [Suspect]
     Active Substance: PIRFENIDONE
     Indication: IDIOPATHIC PULMONARY FIBROSIS
     Dosage: 3 CAPSULES THREE TIMES DAILY ;ONGOING: NO
     Route: 048
     Dates: start: 201705
  6. ESBRIET [Suspect]
     Active Substance: PIRFENIDONE
     Dosage: ONGOING: NO, 3 CAPSULES 3 TIMES A DAY
     Route: 048
     Dates: start: 20170701, end: 20170725

REACTIONS (4)
  - Dizziness [Recovered/Resolved]
  - Loss of consciousness [Recovered/Resolved]
  - Incorrect dose administered [Unknown]
  - Pulmonary hypertension [Not Recovered/Not Resolved]

NARRATIVE: CASE EVENT DATE: 201707
